FAERS Safety Report 7793126-6 (Version None)
Quarter: 2011Q4

REPORT INFORMATION
  Report Type: 
  Country: None (occurrence: None)
  Receive Date: 20111003
  Receipt Date: 20110927
  Transmission Date: 20120403
  Serious: Yes (Other)
  Sender: FDA-Public Use
  Company Number: US-JNJFOC-20110901616

PATIENT
  Sex: Female
  Weight: 48.99 kg

DRUGS (3)
  1. TOPAMAX [Suspect]
     Indication: MIGRAINE
     Route: 048
     Dates: start: 20110622
  2. TOPIRAMATE [Suspect]
     Indication: MIGRAINE
     Route: 065
     Dates: start: 20110531
  3. TOPAMAX [Suspect]
     Route: 048
     Dates: start: 20070101, end: 20080101

REACTIONS (6)
  - IMPAIRED WORK ABILITY [None]
  - PRODUCT QUALITY ISSUE [None]
  - AMNESIA [None]
  - DISTURBANCE IN ATTENTION [None]
  - HYPOAESTHESIA [None]
  - SENSORY DISTURBANCE [None]
